FAERS Safety Report 5263283-4 (Version None)
Quarter: 2007Q1

REPORT INFORMATION
  Report Type: 
  Country: None (occurrence: None)
  Receive Date: 20061219
  Receipt Date: 20061018
  Transmission Date: 20070707
  Serious: No
  Sender: FDA-Public Use
  Company Number: 2006US002339

PATIENT
  Age: 79 Year
  Sex: Male

DRUGS (10)
  1. VESICARE [Suspect]
     Indication: URINARY INCONTINENCE
     Dosage: 5 MG, ORAL
     Route: 048
  2. ALPRAZOLAM [Concomitant]
  3. BENICAR [Concomitant]
  4. METHADONE HCL [Concomitant]
  5. GLIMEPIRIDE [Concomitant]
  6. ALLOPURINOL [Concomitant]
  7. GABAPENTIN [Concomitant]
  8. CALCIUM CITRATE (CALCIUM CITRATE) [Concomitant]
  9. MAGNESIUM [Concomitant]
  10. ALEVE [Concomitant]

REACTIONS (1)
  - BLOOD GLUCOSE INCREASED [None]
